FAERS Safety Report 10063486 (Version 1)
Quarter: 2014Q2

REPORT INFORMATION
  Report Type: Spontaneous
  Country: DK (occurrence: FR)
  Receive Date: 20140407
  Receipt Date: 20140407
  Transmission Date: 20141212
  Serious: Yes (Death)
  Sender: FDA-Public Use
  Company Number: FR-FRI-1000066199

PATIENT
  Age: 70 Year
  Sex: Male

DRUGS (7)
  1. ESCITALOPRAM [Suspect]
     Dosage: 20 MG
     Route: 048
  2. DUOPLAVIN [Suspect]
     Dosage: 1 DF
     Route: 048
  3. COVERSYL [Concomitant]
  4. DOLIPRANE [Concomitant]
  5. EUPANTOL [Concomitant]
  6. CRESTOR [Concomitant]
  7. EXELON [Concomitant]

REACTIONS (1)
  - Subdural haematoma [Fatal]
